FAERS Safety Report 13461681 (Version 1)
Quarter: 2017Q2

REPORT INFORMATION
  Report Type: Spontaneous
  Country: US (occurrence: US)
  Receive Date: 20170419
  Receipt Date: 20170419
  Transmission Date: 20170830
  Serious: No
  Sender: FDA-Public Use
  Company Number: None

PATIENT
  Age: 87 Year
  Sex: Female

DRUGS (1)
  1. REVLIMID [Suspect]
     Active Substance: LENALIDOMIDE
     Indication: ACUTE MYELOID LEUKAEMIA
     Dosage: 15MG DAILY, OFF 7 DAYS ORAL
     Route: 048
     Dates: start: 20130303, end: 20131023

REACTIONS (4)
  - Tremor [None]
  - Headache [None]
  - Head discomfort [None]
  - Dizziness [None]

NARRATIVE: CASE EVENT DATE: 20131023
